FAERS Safety Report 8102411-X (Version None)
Quarter: 2012Q1

REPORT INFORMATION
  Report Type: 
  Country: None (occurrence: None)
  Receive Date: 20120131
  Receipt Date: 20120131
  Transmission Date: 20120608
  Serious: No
  Sender: FDA-Public Use
  Company Number: None

PATIENT
  Age: 52 Year
  Sex: Female

DRUGS (1)
  1. STELARA [Suspect]
     Indication: RHEUMATOID ARTHRITIS
     Dosage: INJECT 1 SYRINGE UNDER THE SKIN EVERY 12
     Dates: start: 20101217

REACTIONS (1)
  - HEPATIC ENZYME INCREASED [None]
